FAERS Safety Report 10842285 (Version 5)
Quarter: 2019Q1

REPORT INFORMATION
  Report Type: Spontaneous
  Country: US (occurrence: US)
  Receive Date: 20150220
  Receipt Date: 20190122
  Transmission Date: 20190417
  Serious: No
  Sender: FDA-Public Use
  Company Number: US-PFIZER INC-2015060245

PATIENT
  Age: 45 Year
  Sex: Female

DRUGS (35)
  1. ADDERALL [Suspect]
     Active Substance: AMPHETAMINE ASPARTATE\AMPHETAMINE SULFATE\DEXTROAMPHETAMINE SACCHARATE\DEXTROAMPHETAMINE SULFATE
     Dosage: 10 MG, UNK
     Route: 048
  2. NAPROXEN. [Suspect]
     Active Substance: NAPROXEN
     Dosage: UNK
  3. PYRIDIUM PLUS [Suspect]
     Active Substance: BUTABARBITAL\HYOSCYAMINE HYDROBROMIDE\PHENAZOPYRIDINE HYDROCHLORIDE
     Dosage: UNK
  4. METHYLPHENIDATE HYDROCHLORIDE. [Suspect]
     Active Substance: METHYLPHENIDATE HYDROCHLORIDE
     Dosage: UNK
  5. CYMBALTA [Suspect]
     Active Substance: DULOXETINE HYDROCHLORIDE
     Dosage: UNK
  6. DIOVAN [Suspect]
     Active Substance: VALSARTAN
     Dosage: UNK
  7. DULCOLAX NOS [Suspect]
     Active Substance: BISACODYL OR DOCUSATE SODIUM
     Dosage: UNK
  8. KADIAN [Suspect]
     Active Substance: MORPHINE SULFATE
     Dosage: UNK
  9. MODAFINIL. [Suspect]
     Active Substance: MODAFINIL
     Dosage: UNK
  10. KETOROLAC TROMETHAMINE. [Suspect]
     Active Substance: KETOROLAC TROMETHAMINE
     Dosage: UNK
  11. EFFEXOR [Suspect]
     Active Substance: VENLAFAXINE HYDROCHLORIDE
     Dosage: UNK
  12. CARVEDILOL. [Suspect]
     Active Substance: CARVEDILOL
     Dosage: UNK
  13. DEXTROAMPHETAMINE [DEXAMFETAMINE] [Suspect]
     Active Substance: DEXTROAMPHETAMINE
     Dosage: UNK
  14. HYDROXYZINE [Suspect]
     Active Substance: HYDROXYZINE HYDROCHLORIDE
     Dosage: UNK
  15. LISDEXAMFETAMINE [Suspect]
     Active Substance: LISDEXAMFETAMINE
     Dosage: UNK
  16. AMPHETAMINE [Suspect]
     Active Substance: AMPHETAMINE
     Dosage: UNK
  17. DEXTROMETHORPHAN [Suspect]
     Active Substance: DEXTROMETHORPHAN
     Dosage: UNK
  18. PHENAZOPYRIDINE. [Suspect]
     Active Substance: PHENAZOPYRIDINE
     Dosage: UNK
  19. BISACODYL. [Suspect]
     Active Substance: BISACODYL
     Dosage: UNK
  20. DEXTROAMPHET SACCHARAT, AMPHET ASPARTATE, DEXTROAMPHET SULFATE AND AMPHET SULFAT [Suspect]
     Active Substance: AMPHETAMINE ASPARTATE\AMPHETAMINE SULFATE\DEXTROAMPHETAMINE SACCHARATE\DEXTROAMPHETAMINE SULFATE
     Dosage: UNK
  21. TORADOL [Suspect]
     Active Substance: KETOROLAC TROMETHAMINE
     Dosage: UNK
     Route: 030
  22. IBUPROFEN/PSEUDOEPHEDRINE HYDROCHLORIDE [Suspect]
     Active Substance: IBUPROFEN\PSEUDOEPHEDRINE HYDROCHLORIDE
     Dosage: UNK
  23. LITHIUM CARBONATE. [Suspect]
     Active Substance: LITHIUM CARBONATE
     Dosage: UNK
  24. MORPHINE SULFATE. [Suspect]
     Active Substance: MORPHINE SULFATE
     Dosage: UNK
  25. DULOXETINE. [Suspect]
     Active Substance: DULOXETINE
     Dosage: UNK
  26. PAXIL [Suspect]
     Active Substance: PAROXETINE HYDROCHLORIDE
     Dosage: UNK
  27. VALSARTAN. [Suspect]
     Active Substance: VALSARTAN
     Dosage: UNK
  28. VENLAFAXINE HCL [Suspect]
     Active Substance: VENLAFAXINE HYDROCHLORIDE
     Dosage: UNK
  29. LAMOTRIGINE. [Suspect]
     Active Substance: LAMOTRIGINE
     Dosage: UNK
  30. ZETIA [Suspect]
     Active Substance: EZETIMIBE
     Dosage: UNK
  31. CORTISONE (CORTISONE ACETATE) [Suspect]
     Active Substance: CORTISONE ACETATE
     Dosage: UNK
  32. LAMICTAL [Suspect]
     Active Substance: LAMOTRIGINE
     Dosage: UNK
  33. PROPOXYPHENE. [Suspect]
     Active Substance: PROPOXYPHENE
     Dosage: UNK
  34. PAROXETINE. [Suspect]
     Active Substance: PAROXETINE
     Dosage: UNK
  35. VICOPROFEN [Suspect]
     Active Substance: HYDROCODONE BITARTRATE\IBUPROFEN
     Dosage: UNK

REACTIONS (1)
  - Drug hypersensitivity [Unknown]
